FAERS Safety Report 4610784-5 (Version None)
Quarter: 2005Q2

REPORT INFORMATION
  Report Type: 
  Country: None (occurrence: None)
  Receive Date: 20050223
  Receipt Date: 20040217
  Transmission Date: 20051028
  Serious: Yes (Disabling)
  Sender: FDA-Public Use
  Company Number: WAES99080031

PATIENT
  Age: 88 Year
  Sex: Male

DRUGS (12)
  1. ZOCOR [Suspect]
     Indication: HYPERCHOLESTEROLAEMIA
     Dosage: 40; 80 MG/ DAILY/ PO
     Route: 048
     Dates: start: 19940101, end: 20010101
  2. ZOCOR [Suspect]
     Indication: HYPERCHOLESTEROLAEMIA
     Dosage: 40; 80 MG/ DAILY/ PO
     Route: 048
     Dates: start: 20010101
  3. ACIPHEX [Concomitant]
  4. LANOXIN [Concomitant]
  5. LASIX [Concomitant]
  6. NASACORT [Concomitant]
  7. NASONEX [Concomitant]
  8. TOPROL-XL [Concomitant]
  9. UBIDECARENONE [Concomitant]
  10. VITAMIN A [Concomitant]
  11. VITAMINS (UNSPECIFIED) [Concomitant]
  12. . [Concomitant]

REACTIONS (3)
  - ARTHRALGIA [None]
  - MYALGIA [None]
  - ROTATOR CUFF SYNDROME [None]
